FAERS Safety Report 26217425 (Version 1)
Quarter: 2025Q4

REPORT INFORMATION
  Report Type: Spontaneous
  Country: US (occurrence: US)
  Receive Date: 20251231
  Receipt Date: 20251231
  Transmission Date: 20260117
  Serious: Yes (Other)
  Sender: GLAND PHARMA LTD
  Company Number: US-GLANDPHARMA-US-2025GLNSPO02144

PATIENT
  Age: 8 Decade
  Sex: Male

DRUGS (4)
  1. IRINOTECAN HYDROCHLORIDE [Suspect]
     Active Substance: IRINOTECAN HYDROCHLORIDE
     Indication: Endometrial adenocarcinoma
     Dosage: 5 CYCLES
     Route: 065
     Dates: start: 202505
  2. IRINOTECAN HYDROCHLORIDE [Suspect]
     Active Substance: IRINOTECAN HYDROCHLORIDE
     Dosage: 3RD CYCLE
     Route: 065
     Dates: start: 202512
  3. CETUXIMAB [Suspect]
     Active Substance: CETUXIMAB
     Indication: Endometrial adenocarcinoma
     Dosage: 5 CYCLES
     Route: 065
     Dates: start: 202505
  4. BEVACIZUMAB [Suspect]
     Active Substance: BEVACIZUMAB
     Indication: Adenocarcinoma gastric recurrent
     Dosage: 3RD CYCLE
     Route: 065
     Dates: start: 202512

REACTIONS (3)
  - Neutropenia [Unknown]
  - Pyrexia [Unknown]
  - Somnolence [Unknown]

NARRATIVE: CASE EVENT DATE: 20250101
